FAERS Safety Report 13803124 (Version 3)
Quarter: 2017Q3

REPORT INFORMATION
  Report Type: Spontaneous
  Country: FR (occurrence: FR)
  Receive Date: 20170728
  Receipt Date: 20170921
  Transmission Date: 20171127
  Serious: Yes (Hospitalization, Other)
  Sender: FDA-Public Use
  Company Number: FR-JNJFOC-20170719314

PATIENT
  Age: 13 Year
  Sex: Female
  Weight: 50 kg

DRUGS (2)
  1. INFLIXIMAB, RECOMBINANT [Suspect]
     Active Substance: INFLIXIMAB
     Indication: CROHN^S DISEASE
     Route: 042
     Dates: start: 2011, end: 2014
  2. HUMIRA [Suspect]
     Active Substance: ADALIMUMAB
     Indication: CROHN^S DISEASE
     Route: 065
     Dates: start: 2014, end: 2015

REACTIONS (5)
  - Psoriasis [Recovered/Resolved]
  - Eczema [Recovered/Resolved]
  - Drug specific antibody present [Unknown]
  - Subcutaneous abscess [Recovering/Resolving]
  - Breast abscess [Recovered/Resolved]

NARRATIVE: CASE EVENT DATE: 201305
